FAERS Safety Report 4332249-0 (Version None)
Quarter: 2004Q1

REPORT INFORMATION
  Report Type: 
  Country: None (occurrence: None)
  Receive Date: 20040331
  Receipt Date: 20040322
  Transmission Date: 20041129
  Serious: Yes (Other)
  Sender: FDA-Public Use
  Company Number: 2004205271GB

PATIENT
  Age: 79 Year
  Sex: Female

DRUGS (6)
  1. CELEBREX [Suspect]
     Indication: ARTHRITIS
     Dosage: 100MG, ORAL
     Route: 048
     Dates: start: 20040224, end: 20040302
  2. GAVISCON      /OLD FORM [Concomitant]
  3. ASPIRIN [Concomitant]
  4. BALSALAZIDE (BALSALAZIDE) [Concomitant]
  5. BENDROFLUAXIDE [Concomitant]
  6. ACETAMINOPHEN [Concomitant]

REACTIONS (2)
  - COLITIS ULCERATIVE [None]
  - CONDITION AGGRAVATED [None]
